FAERS Safety Report 21748415 (Version 1)
Quarter: 2022Q4

REPORT INFORMATION
  Report Type: Report from Study
  Country: US (occurrence: US)
  Receive Date: 20221219
  Receipt Date: 20221219
  Transmission Date: 20230112
  Serious: No
  Sender: FDA-Public Use
  Company Number: US-ABBVIE-4203917

PATIENT
  Sex: Female

DRUGS (3)
  1. HUMIRA [Suspect]
     Active Substance: ADALIMUMAB
     Indication: Rheumatoid arthritis
     Route: 058
  2. Pfizer BioNTech COVID-19 vaccine (Tozinameran) [Concomitant]
     Indication: COVID-19 immunisation
     Dosage: 1ST  DOSE, 1 IN ONCE
     Route: 030
  3. Pfizer BioNTech COVID-19 vaccine (Tozinameran) [Concomitant]
     Indication: COVID-19 immunisation
     Dosage: BOOSTER DOSE, 1 IN ONCE
     Route: 030

REACTIONS (3)
  - Myalgia [Recovering/Resolving]
  - Diarrhoea [Recovered/Resolved]
  - Dizziness [Recovered/Resolved]
